FAERS Safety Report 9624592 (Version 2)
Quarter: 2013Q4

REPORT INFORMATION
  Report Type: Spontaneous
  Country: US (occurrence: US)
  Receive Date: 20131015
  Receipt Date: 20131029
  Transmission Date: 20140711
  Serious: Yes (Hospitalization)
  Sender: FDA-Public Use
  Company Number: US-PFIZER INC-2013294023

PATIENT
  Age: 15 Year
  Sex: Female

DRUGS (6)
  1. PIPERACILLIN/TAZOBACTAM [Suspect]
     Indication: PYREXIA
     Dosage: UNK
  2. PIPERACILLIN/TAZOBACTAM [Suspect]
     Indication: NEUTROPENIA
  3. VANCOMYCIN [Concomitant]
     Indication: NEUTROPENIA
  4. VANCOMYCIN [Concomitant]
     Indication: PYREXIA
  5. METRONIDAZOLE [Concomitant]
     Indication: NEUTROPENIA
     Dosage: UNK
  6. METRONIDAZOLE [Concomitant]
     Indication: PYREXIA

REACTIONS (3)
  - Renal failure acute [Recovered/Resolved]
  - Blood creatinine increased [Recovered/Resolved]
  - Kidney enlargement [Recovered/Resolved]
